FAERS Safety Report 26083843 (Version 1)
Quarter: 2025Q4

REPORT INFORMATION
  Report Type: Spontaneous
  Country: US (occurrence: US)
  Receive Date: 20251124
  Receipt Date: 20251124
  Transmission Date: 20260117
  Serious: Yes (Other)
  Sender: ELI LILLY AND COMPANY
  Company Number: US-ELI_LILLY_AND_COMPANY-US202511009546

PATIENT
  Age: 68 Year
  Sex: Male

DRUGS (1)
  1. BASAGLAR [Suspect]
     Active Substance: INSULIN GLARGINE
     Indication: Product used for unknown indication
     Dosage: 16 U, EACH EVENING (PER NIGHT)
     Route: 065
     Dates: start: 2025

REACTIONS (3)
  - Macular degeneration [Recovered/Resolved]
  - Superficial injury of eye [Recovered/Resolved]
  - Eye swelling [Recovered/Resolved]
